FAERS Safety Report 24170092 (Version 2)
Quarter: 2024Q3

REPORT INFORMATION
  Report Type: Report from Study
  Country: US (occurrence: US)
  Receive Date: 20240803
  Receipt Date: 20240809
  Transmission Date: 20241016
  Serious: Yes (Hospitalization, Other)
  Sender: AMGEN
  Company Number: US-AMGEN-USASL2023098614

PATIENT
  Age: 59 Year
  Sex: Female

DRUGS (1)
  1. ENBREL [Suspect]
     Active Substance: BENZYL ALCOHOL\ETANERCEPT
     Indication: Rheumatoid arthritis
     Dosage: 50 MILLIGRAM, QWK
     Route: 065
     Dates: start: 20210216

REACTIONS (10)
  - Rheumatoid arthritis [Not Recovered/Not Resolved]
  - Heart rate increased [Unknown]
  - Pulmonary fibrosis [Unknown]
  - Bacterial infection [Unknown]
  - Therapy interrupted [Unknown]
  - Blister [Not Recovered/Not Resolved]
  - Inflammation [Unknown]
  - Swelling [Not Recovered/Not Resolved]
  - Pain [Not Recovered/Not Resolved]
  - Headache [Not Recovered/Not Resolved]
